FAERS Safety Report 16008734 (Version 2)
Quarter: 2019Q1

REPORT INFORMATION
  Report Type: Spontaneous
  Country: US (occurrence: US)
  Receive Date: 20190225
  Receipt Date: 20190314
  Transmission Date: 20190418
  Serious: No
  Sender: FDA-Public Use
  Company Number: US-TEVA-2019-US-1013389

PATIENT
  Sex: Male

DRUGS (1)
  1. METFORMIN HYDROCHLORIDE EXTENDED RELEASE TEVA [Suspect]
     Active Substance: METFORMIN HYDROCHLORIDE
     Indication: DIABETES MELLITUS
     Dosage: TAKES 1 TABLET IN THE MORNING AND 1 IN THE EVENING.
     Route: 065

REACTIONS (2)
  - Diabetes mellitus inadequate control [None]
  - Drug ineffective [Unknown]
